FAERS Safety Report 7042498-9 (Version None)
Quarter: 2010Q4

REPORT INFORMATION
  Report Type: 
  Country: None (occurrence: None)
  Receive Date: 20101013
  Receipt Date: 20090924
  Transmission Date: 20110411
  Serious: No
  Sender: FDA-Public Use
  Company Number: US-ASTRAZENECA-2009SE16347

PATIENT
  Age: 84 Year
  Sex: Female
  Weight: 54.4 kg

DRUGS (9)
  1. SYMBICORT [Suspect]
     Dosage: 640 UG TOTAL DAILY DOSE
     Route: 055
     Dates: start: 20090924, end: 20090924
  2. PROAIR HFA [Concomitant]
  3. ALBUTEROL SULFATE [Concomitant]
  4. PREMARIN [Concomitant]
  5. ATENOLOL [Concomitant]
     Indication: ARRHYTHMIA
  6. OXYBUTYRIN [Concomitant]
     Indication: CYSTITIS INTERSTITIAL
  7. NEURONTIN [Concomitant]
     Indication: CONVULSION
  8. DILTIAZEM [Concomitant]
  9. SPIRIVA [Concomitant]

REACTIONS (3)
  - MALAISE [None]
  - PRODUCT ODOUR ABNORMAL [None]
  - PRODUCT TASTE ABNORMAL [None]
